FAERS Safety Report 10218362 (Version 1)
Quarter: 2014Q2

REPORT INFORMATION
  Report Type: Report from Study
  Country: MA (occurrence: MA)
  Receive Date: 20140605
  Receipt Date: 20140605
  Transmission Date: 20141212
  Serious: Yes (Other)
  Sender: FDA-Public Use
  Company Number: MA-ROCHE-1409553

PATIENT
  Sex: Female

DRUGS (2)
  1. TRASTUZUMAB [Suspect]
     Indication: BREAST CANCER METASTATIC
     Route: 065
  2. TRASTUZUMAB [Suspect]
     Indication: GASTRIC CANCER

REACTIONS (3)
  - Cardiotoxicity [Unknown]
  - Breast neoplasm [Unknown]
  - Ejection fraction decreased [Unknown]
